FAERS Safety Report 15781241 (Version 2)
Quarter: 2019Q1

REPORT INFORMATION
  Report Type: Spontaneous
  Country: US (occurrence: US)
  Receive Date: 20190102
  Receipt Date: 20190304
  Transmission Date: 20190417
  Serious: No
  Sender: FDA-Public Use
  Company Number: US-SA-2018SA390824

PATIENT
  Sex: Male

DRUGS (1)
  1. HECTOROL [Suspect]
     Active Substance: DOXERCALCIFEROL
     Dosage: 0.5 UG, TIW
     Route: 048
     Dates: start: 2016

REACTIONS (4)
  - Colour blindness [Unknown]
  - Insomnia [Unknown]
  - Dry mouth [Unknown]
  - Migraine [Unknown]
